FAERS Safety Report 4449461-2 (Version None)
Quarter: 2004Q3

REPORT INFORMATION
  Report Type: 
  Country: None (occurrence: None)
  Receive Date: 20040914
  Receipt Date: 20040901
  Transmission Date: 20050211
  Serious: Yes (Hospitalization)
  Sender: FDA-Public Use
  Company Number: 2004231707GB

PATIENT
  Sex: Female

DRUGS (5)
  1. CELEBREX [Suspect]
     Indication: ARTHRALGIA
     Dosage: 100 MG, BID, ORAL
     Route: 048
     Dates: end: 20040805
  2. FEXOFENADINE HCL [Concomitant]
  3. PREDNISOLONE [Concomitant]
  4. ACETYLSALICYLIC ACID [Concomitant]
  5. SALBUTAMOL (SALBUTAMOL) [Concomitant]

REACTIONS (3)
  - RASH [None]
  - SWELLING [None]
  - TREMOR [None]
